FAERS Safety Report 13887867 (Version 5)
Quarter: 2017Q4

REPORT INFORMATION
  Report Type: Spontaneous
  Country: US (occurrence: US)
  Receive Date: 20170821
  Receipt Date: 20171123
  Transmission Date: 20180320
  Serious: Yes (Other)
  Sender: FDA-Public Use
  Company Number: PHEH2017US026139

PATIENT
  Age: 76 Year
  Sex: Male
  Weight: 70.3 kg

DRUGS (15)
  1. AFINITOR [Suspect]
     Active Substance: EVEROLIMUS
     Dosage: 2.5 MG, UNK
     Route: 065
  2. LENVIMA [Suspect]
     Active Substance: LENVATINIB
     Dosage: 10 MG, UNK
     Route: 048
     Dates: start: 20170814
  3. ATORVASTATIN CALCIUM. [Concomitant]
     Active Substance: ATORVASTATIN CALCIUM
     Indication: PRODUCT USED FOR UNKNOWN INDICATION
     Dosage: 10 MG, UNK
     Route: 065
  4. AFINITOR [Suspect]
     Active Substance: EVEROLIMUS
     Dosage: 5 MG EVERY OTHER DAY
     Route: 065
  5. OMEGA 3+VITAMIN D3 [Concomitant]
     Indication: PRODUCT USED FOR UNKNOWN INDICATION
     Dosage: 150 TO 500 MG
     Route: 065
  6. LENVIMA [Suspect]
     Active Substance: LENVATINIB
     Indication: RENAL CANCER
     Dosage: 10 MG, QD
     Route: 048
     Dates: start: 20170728, end: 20170807
  7. AFINITOR [Suspect]
     Active Substance: EVEROLIMUS
     Indication: PRODUCT USED FOR UNKNOWN INDICATION
     Dosage: UNK
     Route: 065
     Dates: start: 201707, end: 20170807
  8. LENVIMA [Suspect]
     Active Substance: LENVATINIB
     Dosage: CHANGED DOSE TO 3 WEEKS ON, 1 WEEK OFF
     Route: 048
     Dates: end: 20170920
  9. PANTOPRAZOLE SODIUM. [Concomitant]
     Active Substance: PANTOPRAZOLE SODIUM
     Indication: PRODUCT USED FOR UNKNOWN INDICATION
     Dosage: 20 MG, UNK
     Route: 065
  10. DIPHENHIST [Concomitant]
     Active Substance: DIPHENHYDRAMINE HYDROCHLORIDE
     Indication: PRODUCT USED FOR UNKNOWN INDICATION
     Dosage: 25 MG, UNK
     Route: 065
  11. LENVIMA [Suspect]
     Active Substance: LENVATINIB
     Dosage: 10 MG, QD
     Route: 048
  12. SYNTHROID [Concomitant]
     Active Substance: LEVOTHYROXINE SODIUM
     Indication: PRODUCT USED FOR UNKNOWN INDICATION
     Dosage: 100 UG, UNK
     Route: 065
  13. VERAPAMIL [Concomitant]
     Active Substance: VERAPAMIL HYDROCHLORIDE
     Indication: PRODUCT USED FOR UNKNOWN INDICATION
     Dosage: 120 MG, UNK
     Route: 065
  14. MULTIVITAMINS [Concomitant]
     Active Substance: VITAMINS
     Indication: PRODUCT USED FOR UNKNOWN INDICATION
     Route: 065
  15. CALCIUM + VITAMIN D [Concomitant]
     Active Substance: CALCIUM\VITAMIN D
     Indication: PRODUCT USED FOR UNKNOWN INDICATION
     Dosage: 600-500 MG
     Route: 065

REACTIONS (15)
  - Vomiting [Unknown]
  - Back pain [Recovering/Resolving]
  - Muscle spasms [Unknown]
  - Hypotension [Unknown]
  - Asthenia [Unknown]
  - Myalgia [Unknown]
  - Lethargy [Unknown]
  - Nausea [Unknown]
  - Weight decreased [Unknown]
  - Decreased appetite [Unknown]
  - Diarrhoea [Unknown]
  - Abdominal discomfort [Unknown]
  - Dyspnoea [Recovering/Resolving]
  - Fatigue [Unknown]
  - Retching [Unknown]

NARRATIVE: CASE EVENT DATE: 201707
